FAERS Safety Report 9302131 (Version 2)
Quarter: 2013Q4

REPORT INFORMATION
  Report Type: Spontaneous
  Country: US (occurrence: US)
  Receive Date: 20130522
  Receipt Date: 20131108
  Transmission Date: 20140711
  Serious: Yes (Hospitalization)
  Sender: FDA-Public Use
  Company Number: US-B.I. PHARMACEUTICALS,INC./RIDGEFIELD-2013-BI-14125BP

PATIENT
  Age: 80 Year
  Sex: Female
  Weight: 72.57 kg

DRUGS (20)
  1. PRADAXA [Suspect]
     Indication: ANTICOAGULANT THERAPY
     Dates: start: 20120210, end: 20120525
  2. PRADAXA [Suspect]
     Indication: ATRIAL FIBRILLATION
  3. PRADAXA [Suspect]
     Indication: TRANSIENT ISCHAEMIC ATTACK
  4. ASPIRIN [Concomitant]
     Indication: CORONARY ARTERY DISEASE
     Dosage: 81 MG
  5. ASPIRIN [Concomitant]
     Indication: PERIPHERAL ARTERIAL OCCLUSIVE DISEASE
  6. CIPRO [Concomitant]
     Indication: URINARY TRACT INFECTION
     Dosage: 1000 MG
     Dates: start: 20120521
  7. CARDIZEM CD [Concomitant]
  8. LIPITOR [Concomitant]
     Dates: start: 1993
  9. POTASSIUM CHLORIDE [Concomitant]
     Dosage: 40 MEQ
     Dates: start: 1993
  10. LYRICA [Concomitant]
     Dates: start: 2011
  11. SPIRIVA [Concomitant]
     Dosage: 18 MCG
     Dates: start: 2011
  12. ADVAIR [Concomitant]
     Dates: start: 2011
  13. LASIX [Concomitant]
     Indication: DIASTOLIC DYSFUNCTION
     Dates: start: 1993
  14. DIGOXIN [Concomitant]
     Indication: DIASTOLIC DYSFUNCTION
     Dates: start: 2012
  15. ULTRAM [Concomitant]
     Dates: start: 2011
  16. NITROSTAT [Concomitant]
  17. DUONEB [Concomitant]
  18. VITAMIN D [Concomitant]
  19. ATROVENT [Concomitant]
  20. ALBUTEROL NEBULIZER [Concomitant]

REACTIONS (2)
  - Gastrointestinal haemorrhage [Unknown]
  - Haemorrhagic anaemia [Unknown]
